FAERS Safety Report 22169817 (Version 2)
Quarter: 2023Q2

REPORT INFORMATION
  Report Type: Spontaneous
  Country: NL (occurrence: NL)
  Receive Date: 20230404
  Receipt Date: 20230416
  Transmission Date: 20230721
  Serious: Yes (Other)
  Sender: FDA-Public Use
  Company Number: NL-LRB-00872019

PATIENT
  Sex: Male
  Weight: 72 kg

DRUGS (2)
  1. ROSUVASTATIN CALCIUM [Suspect]
     Active Substance: ROSUVASTATIN CALCIUM
     Indication: Hypercholesterolaemia
     Dosage: 20 MILLIGRAM, ONCE A DAY,(1 X PER DAY)
     Route: 065
     Dates: start: 20180101, end: 20210101
  2. ASPIRIN [Concomitant]
     Active Substance: ASPIRIN
     Indication: Product used for unknown indication
     Dosage: UNK,(TABLET, 80 MG (MILLIGRAM))
     Route: 065

REACTIONS (3)
  - Aggression [Recovered/Resolved]
  - Nightmare [Recovered/Resolved]
  - Product substitution issue [Unknown]
